FAERS Safety Report 24759974 (Version 2)
Quarter: 2025Q1

REPORT INFORMATION
  Report Type: Spontaneous
  Country: JP (occurrence: JP)
  Receive Date: 20241220
  Receipt Date: 20250117
  Transmission Date: 20250409
  Serious: Yes (Hospitalization, Other)
  Sender: AMGEN
  Company Number: JP-AMGEN-JPNSP2024247252

PATIENT
  Sex: Male

DRUGS (3)
  1. LUMAKRAS [Suspect]
     Active Substance: SOTORASIB
     Indication: K-ras gene mutation
     Dosage: 960 MILLIGRAM, QD
     Route: 048
     Dates: start: 20241125, end: 2024
  2. LUMAKRAS [Suspect]
     Active Substance: SOTORASIB
     Indication: Non-small cell lung cancer
     Route: 048
     Dates: start: 20241205
  3. LUMAKRAS [Suspect]
     Active Substance: SOTORASIB
     Route: 048

REACTIONS (7)
  - Tumour lysis syndrome [Recovered/Resolved]
  - Renal impairment [Recovered/Resolved]
  - Blood alkaline phosphatase increased [Recovered/Resolved]
  - Hyperkalaemia [Unknown]
  - Diabetes mellitus [Unknown]
  - Dehydration [Recovered/Resolved]
  - Aspartate aminotransferase increased [Recovered/Resolved]

NARRATIVE: CASE EVENT DATE: 20241126
